FAERS Safety Report 6140475-3 (Version None)
Quarter: 2009Q1

REPORT INFORMATION
  Report Type: 
  Country: None (occurrence: None)
  Receive Date: 20090331
  Receipt Date: 20090325
  Transmission Date: 20090719
  Serious: Yes (Other)
  Sender: FDA-Public Use
  Company Number: 2009S1004911

PATIENT
  Age: 69 Year
  Sex: Female
  Weight: 77.1115 kg

DRUGS (5)
  1. FENTANYL TRANSDERMAL SYSTEM [Suspect]
     Indication: ARTHRALGIA
     Dosage: 50 UG;EVERY HOUR; TRANSDERMAL
     Route: 062
     Dates: start: 20070501
  2. FENTANYL TRANSDERMAL SYSTEM [Suspect]
     Dosage: 50 UG; EVERY HOUR; TRANSDERMAL
     Route: 062
     Dates: start: 20070501
  3. ALBUTEROL [Concomitant]
  4. PREDNISONE TAB [Concomitant]
  5. AMLODIPINE [Concomitant]

REACTIONS (7)
  - ASTHMA [None]
  - BRONCHITIS [None]
  - ELECTROLYTE IMBALANCE [None]
  - NAUSEA [None]
  - VIRAL INFECTION [None]
  - VOMITING [None]
  - WHEEZING [None]
